FAERS Safety Report 6666375-8 (Version None)
Quarter: 2010Q2

REPORT INFORMATION
  Report Type: 
  Country: None (occurrence: None)
  Receive Date: 20100402
  Receipt Date: 20100324
  Transmission Date: 20101027
  Serious: Yes (Other)
  Sender: FDA-Public Use
  Company Number: US-JNJFOC-20100307176

PATIENT
  Age: 17 Year
  Sex: Female

DRUGS (7)
  1. REMICADE [Suspect]
     Indication: CROHN'S DISEASE
     Dosage: 4 DOSES
     Route: 042
  2. REMICADE [Suspect]
     Dosage: 4 DOSES
     Route: 042
  3. BENADRYL [Concomitant]
     Indication: PREMEDICATION
  4. HYDROCORTISONE [Concomitant]
     Indication: PREMEDICATION
  5. VITAMIN D [Concomitant]
  6. PREVACID [Concomitant]
  7. PENTASA [Concomitant]

REACTIONS (4)
  - DYSPNOEA [None]
  - INFUSION RELATED REACTION [None]
  - LOSS OF CONSCIOUSNESS [None]
  - WHEEZING [None]
